FAERS Safety Report 7278329-1 (Version None)
Quarter: 2011Q1

REPORT INFORMATION
  Report Type: 
  Country: None (occurrence: None)
  Receive Date: 20110207
  Receipt Date: 20110131
  Transmission Date: 20110831
  Serious: Yes (Life-Threatening, Hospitalization)
  Sender: FDA-Public Use
  Company Number: SE-AMGEN-02040857

PATIENT
  Age: 62 Year
  Sex: Female

DRUGS (6)
  1. ZOLPIDEM TARTRATE [Concomitant]
  2. ETANERCEPT [Suspect]
     Dosage: 25 MG, 2 TIMES/WK
     Route: 058
     Dates: start: 19991214, end: 20020409
  3. ENALAPRIL MALEATE [Concomitant]
  4. METOPROLOL TARTRATE [Concomitant]
  5. TRAMADOL HYDROCHLORIDE [Concomitant]
  6. PARACETAMOL [Concomitant]

REACTIONS (1)
  - DIFFUSE LARGE B-CELL LYMPHOMA [None]
